FAERS Safety Report 20877751 (Version 1)
Quarter: 2022Q2

REPORT INFORMATION
  Report Type: Spontaneous
  Country: US (occurrence: None)
  Receive Date: 20220526
  Receipt Date: 20220526
  Transmission Date: 20220720
  Serious: Yes (Hospitalization)
  Sender: FDA-Public Use
  Company Number: None

PATIENT
  Age: 63 Year
  Sex: Male
  Weight: 87 kg

DRUGS (1)
  1. BAMLANIVIMAB\ETESEVIMAB [Suspect]
     Active Substance: BAMLANIVIMAB\ETESEVIMAB
     Indication: COVID-19
     Dosage: 700/1400 MG ONCE IV?
     Route: 042
     Dates: start: 20211104, end: 20211104

REACTIONS (3)
  - Respiratory depression [None]
  - Oxygen saturation decreased [None]
  - Hypoxia [None]

NARRATIVE: CASE EVENT DATE: 20211104
